FAERS Safety Report 7766785-1 (Version None)
Quarter: 2011Q3

REPORT INFORMATION
  Report Type: 
  Country: None (occurrence: None)
  Receive Date: 20110922
  Receipt Date: 20101217
  Transmission Date: 20111222
  Serious: No
  Sender: FDA-Public Use
  Company Number: US-ASTRAZENECA-2010SE56626

PATIENT
  Age: 436 Month
  Sex: Female
  Weight: 64.4 kg

DRUGS (14)
  1. SEROQUEL [Suspect]
     Route: 048
  2. SEROQUEL [Suspect]
     Route: 048
  3. SEROQUEL [Suspect]
     Route: 048
  4. CLONAZEPAM [Concomitant]
  5. SEROQUEL [Suspect]
     Indication: BIPOLAR I DISORDER
     Route: 048
     Dates: start: 20091101
  6. SEROQUEL [Suspect]
     Indication: ANXIETY
     Route: 048
     Dates: start: 20091101
  7. SEROQUEL [Suspect]
     Route: 048
  8. LITHIUM CARBONATE [Concomitant]
  9. SEROQUEL [Suspect]
     Indication: AGITATION
     Route: 048
     Dates: start: 20091101
  10. SEROQUEL [Suspect]
     Route: 048
  11. SEROQUEL [Suspect]
     Route: 048
  12. SEROQUEL [Suspect]
     Route: 048
  13. SEROQUEL [Suspect]
     Route: 048
  14. SEROQUEL [Suspect]
     Route: 048

REACTIONS (2)
  - SLUGGISHNESS [None]
  - SOMNOLENCE [None]
